FAERS Safety Report 10568667 (Version 2)
Quarter: 2014Q4

REPORT INFORMATION
  Report Type: Report from Study
  Country: US (occurrence: US)
  Receive Date: 20141106
  Receipt Date: 20141106
  Transmission Date: 20150529
  Serious: Yes (Other)
  Sender: FDA-Public Use
  Company Number: US-GLAXOSMITHKLINE-Z0022731A

PATIENT
  Age: 35 Year
  Sex: Male
  Weight: 95.4 kg

DRUGS (3)
  1. TRAMETINIB TABLET [Suspect]
     Active Substance: TRAMETINIB
     Indication: MALIGNANT MELANOMA
     Dosage: 0.5 MG, QD
     Route: 048
     Dates: start: 20131028
  2. IPILIMUMAB SOLUTION FOR INFUSION [Suspect]
     Active Substance: IPILIMUMAB
     Indication: MALIGNANT MELANOMA
     Dosage: 3 MG/KG, CYC
     Route: 042
     Dates: start: 20131028, end: 20140113
  3. DABRAFENIB CAPSULE [Suspect]
     Active Substance: DABRAFENIB
     Indication: MALIGNANT MELANOMA
     Dosage: 100 MG, BID
     Route: 048
     Dates: start: 20141028

REACTIONS (2)
  - Pyrexia [Recovered/Resolved]
  - Chills [None]

NARRATIVE: CASE EVENT DATE: 20140516
